FAERS Safety Report 23949062 (Version 1)
Quarter: 2024Q2

REPORT INFORMATION
  Report Type: Report from Study
  Country: US (occurrence: US)
  Receive Date: 20240607
  Receipt Date: 20240607
  Transmission Date: 20240716
  Serious: No
  Sender: FDA-Public Use
  Company Number: US-AstraZeneca-CH-00637640A

PATIENT
  Sex: Male

DRUGS (1)
  1. ULTOMIRIS [Suspect]
     Active Substance: RAVULIZUMAB-CWVZ
     Indication: Myasthenia gravis
     Dosage: UNK
     Route: 042
     Dates: start: 202208

REACTIONS (11)
  - Back pain [Unknown]
  - Muscle spasms [Unknown]
  - Abdominal pain [Unknown]
  - Blood pressure fluctuation [Unknown]
  - Fatigue [Unknown]
  - Dizziness [Unknown]
  - Tremor [Unknown]
  - Chills [Unknown]
  - Limb discomfort [Unknown]
  - Somnolence [Unknown]
  - Taste disorder [Unknown]
